FAERS Safety Report 9706055 (Version 2)
Quarter: 2013Q4

REPORT INFORMATION
  Report Type: Spontaneous
  Country: US (occurrence: US)
  Receive Date: 20131123
  Receipt Date: 20131123
  Transmission Date: 20140711
  Serious: Yes (Other)
  Sender: FDA-Public Use
  Company Number: US-IPSEN BIOPHARMACEUTICALS, INC.-2013-4530

PATIENT
  Age: 55 Year
  Sex: Male
  Weight: 83.4 kg

DRUGS (5)
  1. DYSPORT [Suspect]
     Indication: TORTICOLLIS
     Dosage: 300 UNITS
     Route: 030
     Dates: start: 20130614, end: 20130614
  2. DYSPORT [Suspect]
     Dosage: 500 UNITS
     Route: 030
     Dates: start: 20130614, end: 20130614
  3. LISINOPRIL HYDROCHLOROTHIAZIDE [Concomitant]
     Indication: PRODUCT USED FOR UNKNOWN INDICATION
     Dosage: 10-12.5 MG
     Route: 048
  4. METOPROLOL TARTRATE [Concomitant]
     Indication: PRODUCT USED FOR UNKNOWN INDICATION
     Route: 048
  5. PRAVASTATIN SODIUM [Concomitant]
     Indication: PRODUCT USED FOR UNKNOWN INDICATION
     Route: 048

REACTIONS (4)
  - Muscle spasms [Unknown]
  - Influenza like illness [Unknown]
  - Incorrect drug administration duration [Unknown]
  - Wrong technique in drug usage process [Unknown]
